FAERS Safety Report 9436625 (Version 1)
Quarter: 2013Q3

REPORT INFORMATION
  Report Type: Spontaneous
  Country: US (occurrence: None)
  Receive Date: 20130801
  Receipt Date: 20130801
  Transmission Date: 20140515
  Serious: Yes (Other)
  Sender: FDA-Public Use
  Company Number: None

PATIENT
  Age: 71 Year
  Sex: Male
  Weight: 110.68 kg

DRUGS (3)
  1. METOPROLOL TARTRATE [Suspect]
     Dosage: 25MG BID PO
     Route: 048
     Dates: start: 20130624, end: 20130731
  2. GABAPENTIN [Concomitant]
  3. PANTOPRAZOLE [Concomitant]

REACTIONS (1)
  - Contusion [None]
